FAERS Safety Report 22585086 (Version 1)
Quarter: 2023Q2

REPORT INFORMATION
  Report Type: Other
  Country: PK (occurrence: None)
  Receive Date: 20230609
  Receipt Date: 20230609
  Transmission Date: 20230721
  Serious: Yes (Death)
  Sender: FDA-Public Use
  Company Number: PK-ROCHE-3364271

PATIENT
  Age: 41 Year
  Sex: Male

DRUGS (1)
  1. RITUXIMAB [Suspect]
     Active Substance: RITUXIMAB
     Indication: Diffuse large B-cell lymphoma
     Dosage: RISTOVA THERAPY FOR 8 CYCLES 3 WEEKLY IN DLBCL
     Route: 042
     Dates: start: 20230317

REACTIONS (1)
  - Death [Fatal]

NARRATIVE: CASE EVENT DATE: 20230603
